FAERS Safety Report 9329676 (Version 1)
Quarter: 2013Q2

REPORT INFORMATION
  Report Type: Spontaneous
  Country: US (occurrence: US)
  Receive Date: 20130604
  Receipt Date: 20130604
  Transmission Date: 20140414
  Serious: Yes (Other)
  Sender: FDA-Public Use
  Company Number: US-SANOFI-AVENTIS-2012SA090715

PATIENT
  Sex: Male

DRUGS (2)
  1. LANTUS SOLOSTAR [Suspect]
     Route: 058
  2. SOLOSTAR [Suspect]

REACTIONS (5)
  - Blood glucose fluctuation [Unknown]
  - Hypoglycaemic unconsciousness [Unknown]
  - Neuropathy peripheral [Unknown]
  - Blood pressure fluctuation [Unknown]
  - Glycosylated haemoglobin increased [Unknown]
